FAERS Safety Report 7391168-6 (Version None)
Quarter: 2011Q2

REPORT INFORMATION
  Report Type: 
  Country: None (occurrence: None)
  Receive Date: 20110404
  Receipt Date: 20100526
  Transmission Date: 20111010
  Serious: No
  Sender: FDA-Public Use
  Company Number: US-PFIZER INC-2010067077

PATIENT
  Sex: Female
  Weight: 95 kg

DRUGS (3)
  1. ZOLOFT [Suspect]
     Indication: DEPRESSION
     Dosage: 50 MG, 1X/DAY
     Route: 048
     Dates: start: 20091001, end: 20100525
  2. ZOLOFT [Suspect]
     Indication: DEPENDENCE
  3. ACETAMINOPHEN [Concomitant]
     Dosage: UNK

REACTIONS (2)
  - DRUG SCREEN POSITIVE [None]
  - COUGH [None]
